FAERS Safety Report 7073325-1 (Version None)
Quarter: 2010Q4

REPORT INFORMATION
  Report Type: 
  Country: None (occurrence: None)
  Receive Date: 20101029
  Receipt Date: 20100714
  Transmission Date: 20110411
  Serious: No
  Sender: FDA-Public Use
  Company Number: A0862231A

PATIENT
  Age: 70 Year
  Sex: Male

DRUGS (4)
  1. ADVAIR DISKUS 100/50 [Suspect]
     Indication: ASTHMA
     Dosage: 1PUFF IN THE MORNING
     Route: 055
     Dates: start: 20060101
  2. COUMADIN [Concomitant]
  3. ZOLOFT [Concomitant]
  4. PROSOM [Concomitant]

REACTIONS (1)
  - RASH [None]
